FAERS Safety Report 9016027 (Version 1)
Quarter: 2013Q1

REPORT INFORMATION
  Report Type: Spontaneous
  Country: US (occurrence: US)
  Receive Date: 20130116
  Receipt Date: 20130116
  Transmission Date: 20140127
  Serious: Yes (Other)
  Sender: FDA-Public Use
  Company Number: US-AMGEN-USASP2013002201

PATIENT
  Sex: Female

DRUGS (10)
  1. ENBREL [Suspect]
     Indication: RHEUMATOID ARTHRITIS
     Dosage: 50 MG, QWK
     Route: 058
  2. METHOTREXATE [Concomitant]
     Dosage: 2.5 MG, UNK
  3. SYNTHROID [Concomitant]
     Dosage: 25 MUG, UNK
  4. GABAPENTIN [Concomitant]
     Dosage: 300 MG, UNK
  5. NEXIUM                             /01479302/ [Concomitant]
     Dosage: 20 MG, UNK
  6. VITAMIN D /00107901/ [Concomitant]
     Dosage: 50000 UNIT, UNK
  7. METOPROLOL TARTRATE [Concomitant]
     Dosage: 25 MG, UNK
  8. HYDROCODONE/ACETAMINOPHEN          /00607101/ [Concomitant]
     Dosage: 5-325 MG, UNK
  9. LIDODERM [Concomitant]
     Dosage: 5 %, UNK
  10. FOLIC ACID [Concomitant]
     Dosage: 200 MUG, UNK

REACTIONS (2)
  - Cardiac operation [Unknown]
  - Cardiac failure congestive [Unknown]
